FAERS Safety Report 15591871 (Version 1)
Quarter: 2018Q4

REPORT INFORMATION
  Report Type: Spontaneous
  Country: US (occurrence: US)
  Receive Date: 20181106
  Receipt Date: 20181106
  Transmission Date: 20190205
  Serious: No
  Sender: FDA-Public Use
  Company Number: US-PERRIGO-18US010959

PATIENT
  Age: 56 Year
  Sex: Female
  Weight: 68.27 kg

DRUGS (6)
  1. ESTRADIOL. [Suspect]
     Active Substance: ESTRADIOL
     Indication: MENOPAUSAL SYMPTOMS
     Dosage: UNKNOWN, 3 TIMES WEEKLY
     Route: 067
     Dates: start: 201803, end: 201809
  2. PROGESTERONE. [Suspect]
     Active Substance: PROGESTERONE
     Indication: ATROPHIC VULVOVAGINITIS
  3. PROGESTERONE. [Suspect]
     Active Substance: PROGESTERONE
     Indication: MENOPAUSAL SYMPTOMS
     Dosage: 100 MG, QD
     Route: 048
     Dates: start: 201803, end: 201809
  4. ESTRADIOL. [Suspect]
     Active Substance: ESTRADIOL
     Indication: ATROPHIC VULVOVAGINITIS
     Dosage: UNKNOWN, 3 TIMES WEEKLY
     Route: 067
     Dates: start: 20180924, end: 20181003
  5. VITAMIN D3 [Concomitant]
     Active Substance: CHOLECALCIFEROL
     Indication: SUPPLEMENTATION THERAPY
     Dosage: UNK
     Route: 048
  6. NATURE-THROID [Concomitant]
     Active Substance: THYROID, PORCINE
     Indication: HYPOTHYROIDISM
     Dosage: UNK
     Route: 048
     Dates: start: 201803

REACTIONS (4)
  - Inappropriate schedule of product administration [Recovered/Resolved]
  - Abdominal pain upper [Recovered/Resolved]
  - Pain in extremity [Not Recovered/Not Resolved]
  - Back pain [Not Recovered/Not Resolved]

NARRATIVE: CASE EVENT DATE: 201803
